FAERS Safety Report 5329320-3 (Version None)
Quarter: 2007Q2

REPORT INFORMATION
  Report Type: 
  Country: None (occurrence: None)
  Receive Date: 20070518
  Receipt Date: 20070508
  Transmission Date: 20071010
  Serious: Yes (Other)
  Sender: FDA-Public Use
  Company Number: US-PFIZER INC-2007038148

PATIENT
  Sex: Female
  Weight: 91.8 kg

DRUGS (8)
  1. CHANTIX [Suspect]
     Indication: EX-SMOKER
     Route: 048
  2. GLUCOPHAGE [Concomitant]
     Route: 048
  3. LIPITOR [Concomitant]
     Route: 048
  4. NEXIUM [Concomitant]
     Route: 048
  5. COMBIVENT [Concomitant]
     Route: 055
  6. IMITREX [Concomitant]
  7. METFORMIN HCL [Concomitant]
     Route: 048
  8. LEXAPRO [Concomitant]
     Route: 048

REACTIONS (5)
  - CHOKING [None]
  - COUGH [None]
  - INCREASED UPPER AIRWAY SECRETION [None]
  - PRURITUS [None]
  - RHINORRHOEA [None]
